FAERS Safety Report 19217480 (Version 1)
Quarter: 2021Q2

REPORT INFORMATION
  Report Type: Spontaneous
  Country: KR (occurrence: KR)
  Receive Date: 20210505
  Receipt Date: 20210505
  Transmission Date: 20210717
  Serious: Yes (Hospitalization)
  Sender: FDA-Public Use
  Company Number: KR-STRIDES ARCOLAB LIMITED-2021SP005072

PATIENT
  Age: 55 Year
  Sex: Female

DRUGS (6)
  1. LIDOCAINE. [Suspect]
     Active Substance: LIDOCAINE
     Dosage: 2 MILLILITER
  2. DEXAMETHASONE. [Suspect]
     Active Substance: DEXAMETHASONE
     Indication: NECK PAIN
     Dosage: 5 MG/1ML (STEROID THERAPY)
  3. BONOREX [Suspect]
     Active Substance: IOHEXOL
     Indication: PRODUCT USED FOR UNKNOWN INDICATION
     Dosage: 2 MILLILITER
  4. DEXAMETHASONE. [Suspect]
     Active Substance: DEXAMETHASONE
     Indication: PAIN IN EXTREMITY
  5. LIDOCAINE. [Suspect]
     Active Substance: LIDOCAINE
     Indication: EPIDURAL ANAESTHESIA
     Dosage: UNK, TOPICAL LIDOCAINE IN A PRONE POSITION AND SKIN AT THE C5?C6 LEVEL
     Route: 061
  6. NORMAL SALINE [Suspect]
     Active Substance: SODIUM CHLORIDE
     Indication: PRODUCT USED FOR UNKNOWN INDICATION
     Dosage: 7 MILLILITER

REACTIONS (1)
  - Pneumorrhachis [Unknown]
